FAERS Safety Report 18170318 (Version 1)
Quarter: 2020Q3

REPORT INFORMATION
  Report Type: Report from Study
  Country: US (occurrence: US)
  Receive Date: 20200819
  Receipt Date: 20200819
  Transmission Date: 20201103
  Serious: Yes (Other)
  Sender: FDA-Public Use
  Company Number: NVSC2020US227426

PATIENT

DRUGS (1)
  1. GILENYA [Suspect]
     Active Substance: FINGOLIMOD HYDROCHLORIDE
     Indication: MULTIPLE SCLEROSIS
     Dosage: UNK
     Route: 048

REACTIONS (9)
  - Muscle twitching [Unknown]
  - Memory impairment [Unknown]
  - Dizziness [Unknown]
  - Depression [Unknown]
  - Fatigue [Unknown]
  - Swelling face [Unknown]
  - Multiple sclerosis [Unknown]
  - Coordination abnormal [Unknown]
  - Hypertension [Unknown]
